FAERS Safety Report 9819605 (Version 3)
Quarter: 2014Q1

REPORT INFORMATION
  Report Type: Report from Study
  Country: US (occurrence: US)
  Receive Date: 20140115
  Receipt Date: 20140128
  Transmission Date: 20141002
  Serious: Yes (Hospitalization)
  Sender: FDA-Public Use
  Company Number: US-TAKEDA-TPA2012A05096

PATIENT
  Age: 43 Year
  Sex: Male
  Weight: 78.5 kg

DRUGS (3)
  1. VORTIOXETINE [Suspect]
     Indication: MAJOR DEPRESSION
     Dosage: 20 MG, QD
     Route: 048
     Dates: start: 20120608, end: 20120723
  2. CELEXA                             /00582602/ [Concomitant]
     Indication: DEPRESSION
     Dosage: 20 MG, QD
     Route: 048
     Dates: start: 200808, end: 20120607
  3. CLARITIN(LORATIDINE) [Concomitant]
     Indication: SEASONAL ALLERGY
     Dosage: 10 MG, QD
     Route: 048
     Dates: start: 201206

REACTIONS (1)
  - Nephrolithiasis [Recovered/Resolved]
